FAERS Safety Report 7135315-X (Version None)
Quarter: 2010Q4

REPORT INFORMATION
  Report Type: 
  Country: None (occurrence: None)
  Receive Date: 20101203
  Receipt Date: 20101130
  Transmission Date: 20110411
  Serious: Yes (Hospitalization)
  Sender: FDA-Public Use
  Company Number: B0686718A

PATIENT
  Age: 48 Year
  Sex: Male

DRUGS (2)
  1. AUGMENTIN [Suspect]
     Indication: ANTIBIOTIC PROPHYLAXIS
     Dosage: 1G SINGLE DOSE
     Route: 048
     Dates: start: 20101114, end: 20101114
  2. NASAL PACKING [Concomitant]

REACTIONS (5)
  - ANGIOEDEMA [None]
  - PAINFUL RESPIRATION [None]
  - PALATAL OEDEMA [None]
  - PARAESTHESIA [None]
  - PHARYNGEAL OEDEMA [None]
